FAERS Safety Report 5114782-7 (Version None)
Quarter: 2006Q3

REPORT INFORMATION
  Report Type: 
  Country: None (occurrence: None)
  Receive Date: 20060922
  Receipt Date: 20060908
  Transmission Date: 20061208
  Serious: Yes (Death)
  Sender: FDA-Public Use
  Company Number: 230022

PATIENT
  Sex: Female

DRUGS (2)
  1. TENECTEPLASE [Suspect]
     Indication: MYOCARDIAL INFARCTION
  2. HEPARIN [Suspect]
     Indication: MYOCARDIAL INFARCTION

REACTIONS (1)
  - DEATH [None]
